FAERS Safety Report 5505870-1 (Version None)
Quarter: 2007Q4

REPORT INFORMATION
  Report Type: 
  Country: None (occurrence: None)
  Receive Date: 20071102
  Receipt Date: 20071025
  Transmission Date: 20080405
  Serious: Yes (Other)
  Sender: FDA-Public Use
  Company Number: JP-MERCK-0710USA00304

PATIENT
  Age: 35 Year
  Sex: Male

DRUGS (2)
  1. PROPECIA [Suspect]
     Indication: ALOPECIA
     Route: 048
     Dates: start: 20070903, end: 20070904
  2. PROPECIA [Suspect]
     Route: 048
     Dates: start: 20070913, end: 20070915

REACTIONS (4)
  - APATHY [None]
  - DIZZINESS [None]
  - HEADACHE [None]
  - WRONG TECHNIQUE IN DRUG USAGE PROCESS [None]
